FAERS Safety Report 5630861-X (Version None)
Quarter: 2008Q1

REPORT INFORMATION
  Report Type: 
  Country: None (occurrence: None)
  Receive Date: 20080219
  Receipt Date: 20080208
  Transmission Date: 20080703
  Serious: Yes (Hospitalization)
  Sender: FDA-Public Use
  Company Number: GB-BAUSCH-2008BL000545

PATIENT

DRUGS (7)
  1. PREDNISOLONE [Suspect]
     Indication: LOWER RESPIRATORY TRACT INFECTION
     Route: 048
     Dates: start: 20080116, end: 20080121
  2. CHANTIX [Suspect]
     Indication: SMOKING CESSATION THERAPY
     Route: 048
     Dates: start: 20080103, end: 20080124
  3. BENDROFLUAZIDE [Suspect]
     Indication: HYPERTENSION
     Route: 048
  4. AMLODIPINE [Concomitant]
     Indication: HYPERTENSION
     Route: 048
  5. ALBUTEROL [Concomitant]
     Route: 045
  6. SERETIDE ^GLAXO WELLCOME^ [Concomitant]
  7. TIOTROPIUM [Concomitant]
     Route: 045

REACTIONS (5)
  - AFFECT LABILITY [None]
  - AGGRESSION [None]
  - AGITATION [None]
  - CONFUSIONAL STATE [None]
  - PARANOIA [None]
